FAERS Safety Report 8882334 (Version 1)
Quarter: 2012Q4

REPORT INFORMATION
  Report Type: 
  Country: US (occurrence: US)
  Receive Date: 20121102
  Receipt Date: 20121102
  Transmission Date: 20130627
  Serious: Yes (Other)
  Sender: FDA-Public Use
  Company Number: US-ROCHE-793707

PATIENT
  Age: 18 Year
  Sex: Male
  Weight: 65.83 kg

DRUGS (1)
  1. ACCUTANE [Suspect]
     Indication: ACNE
     Route: 065
     Dates: start: 20070501, end: 20071130

REACTIONS (5)
  - Crohn^s disease [Unknown]
  - Inflammatory bowel disease [Unknown]
  - Depression [Unknown]
  - Gastroenteritis [Recovering/Resolving]
  - Irritable bowel syndrome [Unknown]
